FAERS Safety Report 12476741 (Version 3)
Quarter: 2017Q4

REPORT INFORMATION
  Report Type: Spontaneous
  Country: US (occurrence: US)
  Receive Date: 20160617
  Receipt Date: 20171020
  Transmission Date: 20180320
  Serious: Yes (Hospitalization)
  Sender: FDA-Public Use
  Company Number: ALCN2016US004129

PATIENT
  Age: 4 Month
  Sex: Male
  Weight: 4.1 kg

DRUGS (3)
  1. DEXAMETHASONE SODIUM PHOSPHATE. [Suspect]
     Active Substance: DEXAMETHASONE SODIUM PHOSPHATE
     Dosage: 2 GTT, QD
     Route: 045
  2. DEXAMETHASONE SODIUM PHOSPHATE. [Suspect]
     Active Substance: DEXAMETHASONE SODIUM PHOSPHATE
     Indication: NASAL OBSTRUCTION
     Dosage: 3 GTT, QD
     Route: 045
  3. DEXAMETHASONE SODIUM PHOSPHATE. [Suspect]
     Active Substance: DEXAMETHASONE SODIUM PHOSPHATE
     Dosage: 1 GTT, QD
     Route: 045

REACTIONS (11)
  - Erythema [Recovered/Resolved]
  - Lethargy [Recovered/Resolved]
  - Cushing^s syndrome [Recovered/Resolved]
  - Decreased appetite [Recovered/Resolved]
  - Upper respiratory tract infection [Unknown]
  - Intentional product use issue [Unknown]
  - Respiratory distress [Recovered/Resolved]
  - Swelling face [Recovered/Resolved]
  - Growth retardation [Recovering/Resolving]
  - Cushingoid [Recovered/Resolved]
  - Pyrexia [Unknown]
